FAERS Safety Report 20181823 (Version 1)
Quarter: 2021Q4

REPORT INFORMATION
  Report Type: Spontaneous
  Country: US (occurrence: US)
  Receive Date: 20211214
  Receipt Date: 20211214
  Transmission Date: 20220303
  Serious: No
  Sender: FDA-Public Use
  Company Number: US-GALDERMA-US2021019190

PATIENT

DRUGS (5)
  1. PROACTIV MD ADAPALENE ACNE TREATMENT [Suspect]
     Active Substance: ADAPALENE
     Indication: Acne
     Dosage: 1 DOSAGE FORM, QD
     Route: 061
     Dates: start: 20211025, end: 20211118
  2. PROACTIV MD DAILY OIL CONTROL SPF 30 [Suspect]
     Active Substance: AVOBENZONE\OCTISALATE\OCTOCRYLENE
     Indication: Acne
     Dosage: 1 DOSAGE FORM, TID
     Route: 061
     Dates: start: 20211025, end: 20211118
  3. Proactiv MD Ultra Gentle Cleanser [Concomitant]
     Indication: Acne
     Dosage: 1 DOSAGE FORM, TID
     Route: 061
     Dates: start: 20211025, end: 20211118
  4. Proactiv MD Ultra Hydrating Moisturizer [Concomitant]
     Indication: Acne
     Dosage: 1 DOSAGE FORM, TID
     Route: 061
     Dates: start: 20211025, end: 20211118
  5. Proactiv Post Acne Scar Gel [Concomitant]
     Indication: Acne
     Dosage: 1 DOSAGE FORM, TID
     Route: 061
     Dates: start: 20211025, end: 20211118

REACTIONS (3)
  - Skin burning sensation [Recovered/Resolved]
  - Skin irritation [Recovered/Resolved]
  - Drug ineffective [Unknown]

NARRATIVE: CASE EVENT DATE: 20211108
